FAERS Safety Report 9224720 (Version 5)
Quarter: 2014Q3

REPORT INFORMATION
  Report Type: Report from Study
  Country: US (occurrence: US)
  Receive Date: 20130411
  Receipt Date: 20140819
  Transmission Date: 20150326
  Serious: Yes (Hospitalization, Other)
  Sender: FDA-Public Use
  Company Number: US-BRISTOL-MYERS SQUIBB COMPANY-18736058

PATIENT
  Age: 40 Year
  Sex: Female
  Weight: 91.4 kg

DRUGS (1)
  1. IPILIMUMAB [Suspect]
     Active Substance: IPILIMUMAB
     Indication: MALIGNANT MELANOMA
     Dosage: TOTAL DOSE-907MG,LAST DOSE DATE-26MAR13-907MG?914MG
     Route: 042
     Dates: start: 20130122

REACTIONS (6)
  - Diarrhoea [Recovered/Resolved]
  - Lymphocytic hypophysitis [Unknown]
  - Pruritus [Recovered/Resolved]
  - Rash maculo-papular [Recovering/Resolving]
  - Dehydration [Recovering/Resolving]
  - Myalgia [Unknown]

NARRATIVE: CASE EVENT DATE: 20130312
